FAERS Safety Report 4854809-0 (Version None)
Quarter: 2005Q4

REPORT INFORMATION
  Report Type: 
  Country: None (occurrence: None)
  Receive Date: 20051214
  Receipt Date: 20051214
  Transmission Date: 20060501
  Serious: Yes (Other)
  Sender: FDA-Public Use
  Company Number: None

PATIENT
  Sex: Female
  Weight: 73 kg

DRUGS (1)
  1. LEVOTHROXINE [Suspect]
     Indication: AUTOIMMUNE THYROIDITIS
     Dosage: 125 MICROGRAM DAILY PO
     Route: 048
     Dates: start: 20031001

REACTIONS (2)
  - DRUG LEVEL DECREASED [None]
  - THERAPEUTIC RESPONSE UNEXPECTED WITH DRUG SUBSTITUTION [None]
